FAERS Safety Report 6267557-X (Version None)
Quarter: 2009Q3

REPORT INFORMATION
  Report Type: 
  Country: None (occurrence: None)
  Receive Date: 20090714
  Receipt Date: 20090708
  Transmission Date: 20100115
  Serious: Yes (Hospitalization)
  Sender: FDA-Public Use
  Company Number: US-JNJCH-2009018670

PATIENT
  Age: 46 Year
  Sex: Female
  Weight: 100.2 kg

DRUGS (8)
  1. ZYRTEC [Suspect]
     Indication: HYPERSENSITIVITY
     Dosage: TEXT:ONE TABLET ONCE A DAY
     Route: 048
  2. ALVESCO [Concomitant]
     Indication: DRUG USE FOR UNKNOWN INDICATION
     Dosage: TEXT:UNSPECIFIED ONCE A DAY
     Route: 055
  3. DRUG, UNSPECIFIED [Concomitant]
     Indication: DRUG USE FOR UNKNOWN INDICATION
     Dosage: TEXT:UNSPECIFIED AS NEEDED
     Route: 055
  4. MIDRIN [Concomitant]
     Indication: MIGRAINE
     Dosage: TEXT:UNSPECIFIED AS NEEDED
     Route: 065
  5. METFORMIN HCL [Concomitant]
     Indication: DRUG USE FOR UNKNOWN INDICATION
     Dosage: TEXT:500 MG TWICE A DAY
     Route: 065
  6. TRAZODONE [Concomitant]
     Indication: INSOMNIA
     Dosage: TEXT:UNSPECIFIED
     Route: 065
  7. SYNTHROID [Concomitant]
     Indication: THYROID DISORDER
     Dosage: TEXT:.112 (FREQUENCY UNSPECIFIED)
     Route: 065
  8. MULTI-VITAMINS [Concomitant]
     Indication: VITAMIN SUPPLEMENTATION
     Dosage: TEXT:UNSPECIFIED
     Route: 065

REACTIONS (3)
  - COUGH [None]
  - PHOTOPHOBIA [None]
  - PRURITUS [None]
